FAERS Safety Report 22165373 (Version 1)
Quarter: 2023Q2

REPORT INFORMATION
  Report Type: Other
  Country: US (occurrence: None)
  Receive Date: 20230403
  Receipt Date: 20230403
  Transmission Date: 20230721
  Serious: Yes (Other)
  Sender: FDA-Public Use
  Company Number: US-ROCHE-3295546

PATIENT
  Age: 59 Year
  Sex: Female

DRUGS (7)
  1. OCREVUS [Suspect]
     Active Substance: OCRELIZUMAB
     Indication: Relapsing-remitting multiple sclerosis
     Dosage: 300MG IN 0.9% SODIUM CHLORIDE 250 ML IV INFUSION, SIG: 300MG INTRAVENOUS ONCE ON DAY 1 AND ON DAY 1
     Route: 042
  2. OCREVUS [Suspect]
     Active Substance: OCRELIZUMAB
     Indication: Multiple sclerosis
     Route: 042
  3. SOLU-CORTEF [Concomitant]
     Active Substance: HYDROCORTISONE SODIUM SUCCINATE
  4. PEPCID [Concomitant]
     Active Substance: FAMOTIDINE
  5. BENADRYL [Concomitant]
     Active Substance: DIPHENHYDRAMINE HYDROCHLORIDE
  6. TYLENOL [Concomitant]
     Active Substance: ACETAMINOPHEN
  7. SOLU-MEDROL [Concomitant]
     Active Substance: METHYLPREDNISOLONE SODIUM SUCCINATE

REACTIONS (16)
  - Blood chloride increased [Unknown]
  - Arthralgia [Unknown]
  - Hepatitis B [Unknown]
  - Fatigue [Unknown]
  - Anosmia [Unknown]
  - COVID-19 [Unknown]
  - Gait disturbance [Unknown]
  - Muscular weakness [Unknown]
  - Constipation [Unknown]
  - Anal incontinence [Unknown]
  - Pain in extremity [Unknown]
  - Coordination abnormal [Unknown]
  - Romberg test positive [Unknown]
  - Tandem gait test abnormal [Unknown]
  - Sleep apnoea syndrome [Unknown]
  - pH urine increased [Unknown]

NARRATIVE: CASE EVENT DATE: 20220117
